FAERS Safety Report 5455086-2 (Version None)
Quarter: 2007Q3

REPORT INFORMATION
  Report Type: 
  Country: None (occurrence: None)
  Receive Date: 20070913
  Receipt Date: 20070905
  Transmission Date: 20080115
  Serious: Yes (Life-Threatening, Hospitalization)
  Sender: FDA-Public Use
  Company Number: TCI2007A03843

PATIENT
  Age: 60 Year
  Sex: Female

DRUGS (8)
  1. ACTOS [Suspect]
     Indication: DIABETES MELLITUS
     Dosage: 15 (15 MG, 1 IN 1 D) PER ORAL; 30 MG (30 MG, 1 IN 1 D) PER ORAL
     Route: 048
     Dates: start: 20051229, end: 20070308
  2. ACTOS [Suspect]
     Indication: DIABETES MELLITUS
     Dosage: 15 (15 MG, 1 IN 1 D) PER ORAL; 30 MG (30 MG, 1 IN 1 D) PER ORAL
     Route: 048
     Dates: start: 20070309, end: 20070726
  3. AMARYL [Concomitant]
  4. MIYA-BM (CLOSTRIDIUM BUTYRICUM) [Concomitant]
  5. NIZATIDINE [Concomitant]
  6. AMLODIPINE BESYLATE [Concomitant]
  7. ALLOPURINOL [Concomitant]
  8. PLAVIX [Concomitant]

REACTIONS (5)
  - BRAIN NATRIURETIC PEPTIDE INCREASED [None]
  - GENERALISED OEDEMA [None]
  - OBSTRUCTIVE AIRWAYS DISORDER [None]
  - PITTING OEDEMA [None]
  - PLEURAL EFFUSION [None]
